FAERS Safety Report 10100891 (Version 1)
Quarter: 2014Q2

REPORT INFORMATION
  Report Type: Spontaneous
  Country: US (occurrence: US)
  Receive Date: 20140423
  Receipt Date: 20140423
  Transmission Date: 20141212
  Serious: Yes (Death, Hospitalization, Other)
  Sender: FDA-Public Use
  Company Number: US-ELI_LILLY_AND_COMPANY-US201404006663

PATIENT
  Sex: Female

DRUGS (6)
  1. HUMALOG LISPRO [Suspect]
     Indication: TYPE 2 DIABETES MELLITUS
     Dosage: 50 U, TID
     Route: 065
     Dates: end: 20140412
  2. LANTUS [Concomitant]
  3. AMLODIPINE [Concomitant]
  4. CRESTOR [Concomitant]
  5. LISINOPRIL [Concomitant]
  6. LYRICA [Concomitant]

REACTIONS (4)
  - Cardio-respiratory arrest [Fatal]
  - Renal failure [Unknown]
  - Overdose [Unknown]
  - Malaise [Unknown]
